FAERS Safety Report 21630596 (Version 2)
Quarter: 2023Q1

REPORT INFORMATION
  Report Type: Spontaneous
  Country: US (occurrence: US)
  Receive Date: 20221123
  Receipt Date: 20230104
  Transmission Date: 20230417
  Serious: Yes (Other)
  Sender: FDA-Public Use
  Company Number: US-009507513-2211USA006523

PATIENT
  Sex: Male

DRUGS (7)
  1. KEYTRUDA [Suspect]
     Active Substance: PEMBROLIZUMAB
     Indication: Rectal cancer
     Dosage: EVERY 3 WEEKS
     Route: 042
     Dates: start: 20220908
  2. TYLENOL [Concomitant]
     Active Substance: ACETAMINOPHEN
     Dosage: UNK
  3. TRAMADOL [Concomitant]
     Active Substance: TRAMADOL
     Dosage: 50 MILLIGRAM
  4. KETOROLAC [Concomitant]
     Active Substance: KETOROLAC TROMETHAMINE
     Dosage: UNK
  5. OXYCODONE [Concomitant]
     Active Substance: OXYCODONE
     Dosage: UNK
  6. BIKTARVY [Concomitant]
     Active Substance: BICTEGRAVIR SODIUM\EMTRICITABINE\TENOFOVIR ALAFENAMIDE FUMARATE
     Dosage: UNK
  7. FENTANYL [Concomitant]
     Active Substance: FENTANYL

REACTIONS (11)
  - Malignant neoplasm progression [Unknown]
  - Colostomy [Not Recovered/Not Resolved]
  - Rectal discharge [Not Recovered/Not Resolved]
  - Anorectal discomfort [Unknown]
  - Quality of life decreased [Unknown]
  - Pain [Unknown]
  - Gait inability [Unknown]
  - Sitting disability [Unknown]
  - Sleep disorder [Unknown]
  - Impaired work ability [Unknown]
  - Crying [Unknown]

NARRATIVE: CASE EVENT DATE: 20220101
